FAERS Safety Report 7894958-6 (Version None)
Quarter: 2011Q4

REPORT INFORMATION
  Report Type: 
  Country: None (occurrence: None)
  Receive Date: 20111106
  Receipt Date: 20110822
  Transmission Date: 20120403
  Serious: Yes (Other)
  Sender: FDA-Public Use
  Company Number: US-AMGEN-USASP2011009982

PATIENT
  Age: 43 Year
  Sex: Female

DRUGS (3)
  1. SALSALATE [Suspect]
  2. ENBREL [Suspect]
     Indication: RHEUMATOID ARTHRITIS
     Dosage: 50 MG, QWK
     Dates: start: 20110210
  3. ZONISAMIDE [Suspect]

REACTIONS (5)
  - CHEST PAIN [None]
  - ABDOMINAL DISCOMFORT [None]
  - THERAPEUTIC RESPONSE DECREASED [None]
  - BACK PAIN [None]
  - DIARRHOEA [None]
